FAERS Safety Report 4567656-4 (Version None)
Quarter: 2005Q1

REPORT INFORMATION
  Report Type: 
  Country: None (occurrence: None)
  Receive Date: 20050110
  Receipt Date: 20050110
  Transmission Date: 20050727
  Serious: Yes (Other)
  Sender: FDA-Public Use
  Company Number: None

PATIENT
  Age: 55 Year
  Sex: Female
  Weight: 78.0187 kg

DRUGS (1)
  1. PROCARDIA [Suspect]
     Indication: HYPERTENSION
     Dosage: 300 MG DAILY

REACTIONS (4)
  - ABDOMINAL PAIN [None]
  - NAUSEA [None]
  - PHARMACEUTICAL PRODUCT COMPLAINT [None]
  - VOMITING [None]
